FAERS Safety Report 6590720 (Version 3)
Quarter: 2013Q1

REPORT INFORMATION
  Report Type: Spontaneous
  Country: FR (occurrence: FR)
  Receive Date: 20080321
  Receipt Date: 20130124
  Transmission Date: 20140127
  Serious: Yes (Other)
  Sender: FDA-Public Use
  Company Number: FR-JNJFOC-20071107500

PATIENT
  Sex: Female
  Weight: 68 kg

DRUGS (11)
  1. PREZISTA [Suspect]
     Indication: HIV INFECTION
     Route: 048
     Dates: start: 20071011
  2. PREZISTA [Suspect]
     Indication: HIV INFECTION
     Route: 048
     Dates: start: 20070920, end: 20071011
  3. PREZISTA [Suspect]
     Indication: HIV INFECTION
     Route: 048
  4. NORVIR [Suspect]
     Indication: HIV INFECTION
     Route: 048
     Dates: start: 20051212
  5. VIREAD [Suspect]
     Indication: HIV INFECTION
     Route: 048
     Dates: start: 20040701
  6. VIREAD [Suspect]
     Indication: HIV INFECTION
     Route: 048
     Dates: start: 200512
  7. ZIAGEN [Suspect]
     Indication: HIV INFECTION
     Route: 048
     Dates: start: 20040701
  8. ZIAGEN [Suspect]
     Indication: HIV INFECTION
     Route: 048
     Dates: start: 200512
  9. REYATAZ [Suspect]
     Indication: HIV INFECTION
     Route: 065
     Dates: start: 200512
  10. TELZIR [Suspect]
     Indication: HIV INFECTION
     Route: 065
  11. KIVEXA [Suspect]
     Indication: HIV INFECTION

REACTIONS (8)
  - Pre-eclampsia [Unknown]
  - Gestational diabetes [Unknown]
  - Nephropathy [Unknown]
  - Thrombocytopenia [Unknown]
  - Hepatocellular injury [Unknown]
  - Exposure during pregnancy [Recovered/Resolved]
  - Antiviral drug level below therapeutic [Recovered/Resolved]
  - Prescribed overdose [Unknown]
